FAERS Safety Report 10340442 (Version 1)
Quarter: 2014Q3

REPORT INFORMATION
  Report Type: Spontaneous
  Country: US (occurrence: US)
  Receive Date: 20140724
  Receipt Date: 20140724
  Transmission Date: 20150326
  Serious: Yes (Hospitalization)
  Sender: FDA-Public Use
  Company Number: US-ELI_LILLY_AND_COMPANY-US201407005390

PATIENT
  Sex: Female

DRUGS (4)
  1. CYRAMZA [Suspect]
     Active Substance: RAMUCIRUMAB
     Indication: GASTROOESOPHAGEAL CANCER
     Dosage: UNK, UNKNOWN
     Route: 065
  2. DILAUDID [Concomitant]
     Active Substance: HYDROMORPHONE HYDROCHLORIDE
     Dosage: UNK, UNKNOWN
     Route: 065
  3. FENTANYL. [Concomitant]
     Active Substance: FENTANYL
     Dosage: UNK, UNKNOWN
     Route: 065
  4. PACLITAXEL. [Concomitant]
     Active Substance: PACLITAXEL
     Indication: GASTROOESOPHAGEAL CANCER
     Dosage: UNK, UNKNOWN
     Route: 065

REACTIONS (3)
  - Productive cough [Unknown]
  - Pleural effusion [Unknown]
  - Pneumothorax [Unknown]
